FAERS Safety Report 24959508 (Version 2)
Quarter: 2025Q1

REPORT INFORMATION
  Report Type: Report from Study
  Country: CN (occurrence: CN)
  Receive Date: 20250212
  Receipt Date: 20250317
  Transmission Date: 20250409
  Serious: Yes (Hospitalization)
  Sender: ACCORD
  Company Number: CN-HENLIUS-25CN019088

PATIENT
  Age: 61 Year
  Sex: Female
  Weight: 65.3 kg

DRUGS (6)
  1. DOCETAXEL [Suspect]
     Active Substance: DOCETAXEL
     Indication: Breast cancer stage IV
     Dosage: 75 MILLIGRAM/SQ. METER, Q3W; IV DRIP
     Route: 042
     Dates: start: 20241108
  2. TRASTUZUMAB [Suspect]
     Active Substance: TRASTUZUMAB
     Indication: Breast cancer stage IV
     Dosage: 8 MILLIGRAM/KILOGRAM, Q3W; IV DRIP
     Route: 042
     Dates: start: 20241108, end: 20241108
  3. PERTUZUMAB [Suspect]
     Active Substance: PERTUZUMAB
     Indication: Breast cancer stage IV
     Dosage: 840 MILLIGRAM, Q3W; IV DRIP
     Route: 042
     Dates: start: 20241108, end: 20241108
  4. CALCIUM SULFATE [Concomitant]
     Active Substance: CALCIUM SULFATE
     Indication: Upper respiratory tract infection
     Dosage: 4 TABLETS, QD
     Route: 048
     Dates: start: 20241223, end: 20250111
  5. TRASTUZUMAB [Suspect]
     Active Substance: TRASTUZUMAB
     Indication: Breast cancer stage IV
     Dosage: 6 MILLIGRAM/KILOGRAM, Q3W; IV DRIP
     Route: 042
     Dates: start: 20241128
  6. PERTUZUMAB [Suspect]
     Active Substance: PERTUZUMAB
     Indication: Breast cancer stage IV
     Dosage: 420 MILLIGRAM, Q3W; IV DRIP
     Route: 042
     Dates: start: 20241128

REACTIONS (13)
  - Type 2 diabetes mellitus [Recovering/Resolving]
  - Hyperglycaemia [Recovered/Resolved]
  - Pain in extremity [Not Recovered/Not Resolved]
  - Hypoalbuminaemia [Not Recovered/Not Resolved]
  - Hyponatraemia [Recovered/Resolved]
  - Hypochloraemia [Recovered/Resolved]
  - Decreased appetite [Not Recovered/Not Resolved]
  - Asymptomatic bacteriuria [Recovered/Resolved]
  - Sinus tachycardia [Not Recovered/Not Resolved]
  - Urine ketone body present [Recovered/Resolved]
  - Influenza [Not Recovered/Not Resolved]
  - Mycoplasma infection [Not Recovered/Not Resolved]
  - Oedema peripheral [Not Recovered/Not Resolved]

NARRATIVE: CASE EVENT DATE: 20241112
